FAERS Safety Report 8574153-8 (Version None)
Quarter: 2012Q3

REPORT INFORMATION
  Report Type: 
  Country: None (occurrence: None)
  Receive Date: 20120806
  Receipt Date: 20080519
  Transmission Date: 20120928
  Serious: Yes (Other)
  Sender: FDA-Public Use
  Company Number: CO-PFIZER INC-2012187766

PATIENT
  Age: 58 Year
  Sex: Male

DRUGS (5)
  1. OLMESARTAN MEDOXOMIL AND HYDROCHLOROTHIZIDE [Suspect]
     Indication: HYPERTENSION
     Dosage: OLMESARTAN/HYDROCHLOROTHIAZIDE 20/12.5 MG, 1X/DAY
  2. INSULIN ZINC SUSPENSION [Concomitant]
     Dosage: 20 IU, 2X/DAY
  3. GLIBENCLAMIDE [Concomitant]
     Dosage: 5 MG, 3X/DAY
  4. LIPITOR [Suspect]
     Indication: DYSLIPIDAEMIA
     Dosage: 20 MG, 1X/DAY
  5. ACETAMINOPHEN [Concomitant]
     Dosage: 500 MG, 4X/DAY

REACTIONS (7)
  - HYPERTENSIVE EMERGENCY [None]
  - TOBACCO ABUSE [None]
  - CARDIAC VALVE DISEASE [None]
  - LEUKOCYTURIA [None]
  - GLYCOSURIA [None]
  - OBESITY [None]
  - CARDIAC DISORDER [None]
